FAERS Safety Report 16420566 (Version 1)
Quarter: 2019Q2

REPORT INFORMATION
  Report Type: Spontaneous
  Country: PE (occurrence: PE)
  Receive Date: 20190612
  Receipt Date: 20190612
  Transmission Date: 20190711
  Serious: Yes (Other)
  Sender: FDA-Public Use
  Company Number: PE-ROCHE-2333658

PATIENT
  Sex: Male

DRUGS (4)
  1. MABTHERA [Suspect]
     Active Substance: RITUXIMAB
     Indication: OFF LABEL USE
     Dosage: 8 YEARS AGO
     Route: 065
  2. CELLCEPT [Suspect]
     Active Substance: MYCOPHENOLATE MOFETIL\MYCOPHENOLATE MOFETIL HYDROCHLORIDE
     Indication: OFF LABEL USE
  3. MABTHERA [Suspect]
     Active Substance: RITUXIMAB
     Indication: VASCULITIS
     Dosage: 2 DOSES OF 500 MG
     Route: 065
  4. CELLCEPT [Suspect]
     Active Substance: MYCOPHENOLATE MOFETIL\MYCOPHENOLATE MOFETIL HYDROCHLORIDE
     Indication: RENAL DISORDER
     Dosage: 4 PILLS BEFORE LUNCH AND 4 PILLS AFTER DINNER
     Route: 065

REACTIONS (5)
  - Pneumonia [Recovered/Resolved]
  - Intentional product use issue [Unknown]
  - Renal disorder [Unknown]
  - Lung disorder [Unknown]
  - Off label use [Unknown]
